FAERS Safety Report 13405637 (Version 1)
Quarter: 2017Q2

REPORT INFORMATION
  Report Type: Spontaneous
  Country: US (occurrence: US)
  Receive Date: 20170405
  Receipt Date: 20170405
  Transmission Date: 20170830
  Serious: Yes (Other)
  Sender: FDA-Public Use
  Company Number: US-CIPLA LTD.-2017US05385

PATIENT

DRUGS (9)
  1. DOXORUBICIN [Suspect]
     Active Substance: DOXORUBICIN
     Indication: ANAPLASTIC LARGE-CELL LYMPHOMA
     Dosage: UNK, FOR 3 CYCLES
     Route: 065
  2. PREDNISONE. [Suspect]
     Active Substance: PREDNISONE
     Indication: ANAPLASTIC LARGE-CELL LYMPHOMA
     Dosage: UNK, FOR 3 CYCLES
     Route: 065
  3. ONTAK [Suspect]
     Active Substance: DENILEUKIN DIFTITOX
     Dosage: 18 ?G/KG, DAILY FOR 5 DAYS EVERY 8 WEEKS, 4 CYCLES
     Route: 042
  4. VINCRISTINE [Suspect]
     Active Substance: VINCRISTINE
     Indication: ANAPLASTIC LARGE-CELL LYMPHOMA
     Dosage: UNK, FOR 3 CYCLES
     Route: 065
  5. ONTAK [Suspect]
     Active Substance: DENILEUKIN DIFTITOX
     Indication: ANAPLASTIC LARGE-CELL LYMPHOMA
     Dosage: 18 ?G/KG, DAILY FOR 5 DAYS EVERY 4 WEEKS, 6 CYCLES
     Route: 042
     Dates: start: 201102
  6. CYCLOPHOSPHAMIDE. [Suspect]
     Active Substance: CYCLOPHOSPHAMIDE
     Indication: ANAPLASTIC LARGE-CELL LYMPHOMA
     Dosage: UNK, FOR 3 CYCLES
     Route: 065
  7. IFOSFAMIDE. [Suspect]
     Active Substance: IFOSFAMIDE
     Indication: ANAPLASTIC LARGE-CELL LYMPHOMA
     Dosage: UNK, 4 CYCLES
     Route: 065
     Dates: end: 201012
  8. ETOPOSIDE. [Suspect]
     Active Substance: ETOPOSIDE
     Indication: ANAPLASTIC LARGE-CELL LYMPHOMA
     Dosage: UNK, 4 CYCLES
     Route: 065
     Dates: end: 201012
  9. CARBOPLATIN. [Suspect]
     Active Substance: CARBOPLATIN
     Indication: ANAPLASTIC LARGE-CELL LYMPHOMA
     Dosage: UNK, 4 CYCLES
     Route: 065
     Dates: end: 201012

REACTIONS (6)
  - Fatigue [Unknown]
  - Weight increased [Unknown]
  - Deep vein thrombosis [Unknown]
  - Generalised oedema [Unknown]
  - Disease progression [Recovered/Resolved]
  - Peripheral swelling [Recovered/Resolved]

NARRATIVE: CASE EVENT DATE: 201010
